FAERS Safety Report 12611791 (Version 1)
Quarter: 2016Q3

REPORT INFORMATION
  Report Type: Spontaneous
  Country: US (occurrence: US)
  Receive Date: 20160801
  Receipt Date: 20160801
  Transmission Date: 20161109
  Serious: No
  Sender: FDA-Public Use
  Company Number: US-PFIZER INC-3035906

PATIENT
  Age: 70 Year
  Sex: Female

DRUGS (2)
  1. METHOTREXATE SODIUM. [Suspect]
     Active Substance: METHOTREXATE SODIUM
     Indication: RHEUMATOID ARTHRITIS
  2. ENBREL [Suspect]
     Active Substance: ETANERCEPT
     Indication: RHEUMATOID ARTHRITIS
     Dosage: 50 MG, FREQ: 1 WEEK; INTERVAL: 1.
     Dates: start: 20150801

REACTIONS (12)
  - Feeling abnormal [Unknown]
  - Injection site warmth [Unknown]
  - Injection site reaction [Unknown]
  - Pallor [Unknown]
  - Injection site mass [Unknown]
  - Throat tightness [Unknown]
  - Dysphonia [Unknown]
  - Aphonia [Unknown]
  - Dyspnoea [Unknown]
  - Throat irritation [Unknown]
  - Hypersensitivity [Unknown]
  - Injection site erythema [Unknown]

NARRATIVE: CASE EVENT DATE: 20150101
